FAERS Safety Report 5920863-8 (Version None)
Quarter: 2008Q4

REPORT INFORMATION
  Report Type: 
  Country: None (occurrence: None)
  Receive Date: 20081015
  Receipt Date: 20081015
  Transmission Date: 20090506
  Serious: Yes (Other)
  Sender: FDA-Public Use
  Company Number: None

PATIENT
  Age: 65 Year
  Sex: Female
  Weight: 84.8226 kg

DRUGS (1)
  1. SIMVASTIN -SIMVASTATIN- 10MG LUPIN [Suspect]
     Indication: BLOOD CHOLESTEROL
     Dosage: 1 DAILY
     Dates: start: 20080902

REACTIONS (3)
  - JOINT SWELLING [None]
  - MYALGIA [None]
  - PARAESTHESIA [None]
